FAERS Safety Report 7541557-1 (Version None)
Quarter: 2011Q2

REPORT INFORMATION
  Report Type: 
  Country: None (occurrence: None)
  Receive Date: 20110613
  Receipt Date: 20110606
  Transmission Date: 20111010
  Serious: No
  Sender: FDA-Public Use
  Company Number: US-PFIZER INC-2011123457

PATIENT
  Sex: Male
  Weight: 63.492 kg

DRUGS (5)
  1. TOPROL-XL [Concomitant]
     Indication: BLOOD PRESSURE ABNORMAL
     Dosage: 100 MG, DAILY
     Route: 048
  2. TOPROL-XL [Concomitant]
     Indication: CARDIAC DISORDER
  3. PROPRANOLOL [Concomitant]
     Indication: BLOOD PRESSURE ABNORMAL
     Dosage: 100 MG, DAILY
     Route: 048
  4. TOVIAZ [Suspect]
     Dosage: 4 MG, DAILY
     Route: 048
     Dates: start: 20110506, end: 20110501
  5. PROPRANOLOL [Concomitant]
     Indication: CARDIAC DISORDER

REACTIONS (1)
  - URINE ANALYSIS ABNORMAL [None]
